FAERS Safety Report 15568017 (Version 1)
Quarter: 2018Q4

REPORT INFORMATION
  Report Type: Spontaneous
  Country: US (occurrence: US)
  Receive Date: 20181030
  Receipt Date: 20181030
  Transmission Date: 20190205
  Serious: Yes (Other)
  Sender: FDA-Public Use
  Company Number: US-BIOMARINAP-US-2018-120511

PATIENT
  Sex: Female
  Weight: 28 kg

DRUGS (1)
  1. VIMIZIM [Suspect]
     Active Substance: ELOSULFASE ALFA
     Indication: PRODUCT USED FOR UNKNOWN INDICATION
     Dosage: 65 MILLIGRAM, QW
     Route: 042
     Dates: start: 20140527

REACTIONS (7)
  - Infusion site pain [Unknown]
  - Hallucination, auditory [Unknown]
  - Depression [Unknown]
  - Anxiety [Unknown]
  - Vascular access complication [Unknown]
  - Post-traumatic stress disorder [Unknown]
  - Product dose omission [Unknown]
